FAERS Safety Report 4895164-X (Version None)
Quarter: 2006Q1

REPORT INFORMATION
  Report Type: 
  Country: None (occurrence: None)
  Receive Date: 20060130
  Receipt Date: 20060119
  Transmission Date: 20060701
  Serious: Yes (Hospitalization, Other)
  Sender: FDA-Public Use
  Company Number: DE-JNJFOC-20051105757

PATIENT
  Sex: Male
  Weight: 84 kg

DRUGS (2)
  1. RISPERDAL [Suspect]
     Indication: DRUG USE FOR UNKNOWN INDICATION
     Route: 065
  2. ALCOHOLIC BEVERAGE [Suspect]
     Route: 065

REACTIONS (5)
  - ALCOHOLISM [None]
  - DRUG ABUSER [None]
  - OVERDOSE [None]
  - PALPITATIONS [None]
  - SYNCOPE [None]
